FAERS Safety Report 5026955-2 (Version None)
Quarter: 2006Q2

REPORT INFORMATION
  Report Type: 
  Country: None (occurrence: None)
  Receive Date: 20060615
  Receipt Date: 20060612
  Transmission Date: 20061013
  Serious: Yes (Hospitalization)
  Sender: FDA-Public Use
  Company Number: AR-AVENTIS-200616228GDDC

PATIENT
  Age: 64 Year
  Sex: Female

DRUGS (9)
  1. INSULIN GLARGINE [Suspect]
     Indication: DIABETES MELLITUS
     Route: 058
     Dates: start: 20031201, end: 20060601
  2. OPTIPEN (INSULIN PUMP) [Suspect]
     Dates: start: 20060201, end: 20060601
  3. METFORMIN [Concomitant]
     Indication: DIABETES MELLITUS
     Route: 048
  4. PORK INSULIN [Concomitant]
     Indication: DIABETES MELLITUS
     Route: 058
  5. NPH INSULIN [Concomitant]
     Indication: DIABETES MELLITUS
     Route: 058
  6. T4 [Concomitant]
     Indication: HYPOTHYROIDISM
     Route: 048
     Dates: start: 20000101
  7. DIURETICS [Concomitant]
     Indication: HYPERTENSION
     Route: 048
     Dates: start: 20020101
  8. ENALAPRIL [Concomitant]
     Indication: HYPERTENSION
     Route: 048
     Dates: start: 20020101
  9. VITAMIN B 1-6-12 [Concomitant]
     Indication: DIABETIC NEUROPATHY
     Route: 048
     Dates: start: 19960101

REACTIONS (7)
  - DIZZINESS [None]
  - HYPERGLYCAEMIA [None]
  - HYPERHIDROSIS [None]
  - HYPOTENSION [None]
  - NAUSEA [None]
  - THIRST [None]
  - VOMITING [None]
